FAERS Safety Report 19120895 (Version 2)
Quarter: 2021Q3

REPORT INFORMATION
  Report Type: Report from Study
  Country: US (occurrence: US)
  Receive Date: 20210412
  Receipt Date: 20210701
  Transmission Date: 20211014
  Serious: Yes (Hospitalization, Other)
  Sender: FDA-Public Use
  Company Number: US-SHIRE-US202022039

PATIENT
  Age: 67 Year
  Sex: Female
  Weight: 89.5 kg

DRUGS (24)
  1. TEDUGLUTIDE [Suspect]
     Active Substance: TEDUGLUTIDE
     Dosage: 4.5 GRAM, 1X/DAY:QD
     Route: 058
     Dates: start: 20200703
  2. TEDUGLUTIDE [Suspect]
     Active Substance: TEDUGLUTIDE
     Dosage: 4.48 MILLIGRAM, 1X/DAY:QD
     Route: 058
     Dates: start: 20200703
  3. TEDUGLUTIDE [Suspect]
     Active Substance: TEDUGLUTIDE
     Dosage: 4.48 MILLIGRAM, 1X/DAY:QD
     Route: 058
     Dates: start: 20200703
  4. TEDUGLUTIDE [Suspect]
     Active Substance: TEDUGLUTIDE
     Indication: SHORT-BOWEL SYNDROME
     Dosage: 0.45 MILLILITER, 1X/DAY:QD
     Route: 050
  5. TEDUGLUTIDE [Suspect]
     Active Substance: TEDUGLUTIDE
     Dosage: 4.5 MILLIGRAM, QD
     Route: 058
     Dates: start: 20200703
  6. TEDUGLUTIDE [Suspect]
     Active Substance: TEDUGLUTIDE
     Dosage: 4.5 MILLIGRAM, QD
     Route: 058
     Dates: start: 20200703
  7. TEDUGLUTIDE [Suspect]
     Active Substance: TEDUGLUTIDE
     Dosage: 4.5 MILLIGRAM, QD
     Route: 058
     Dates: start: 20200703
  8. TEDUGLUTIDE [Suspect]
     Active Substance: TEDUGLUTIDE
     Indication: SHORT-BOWEL SYNDROME
     Dosage: 0.45 MILLILITER, 1X/DAY:QD
     Route: 050
  9. TEDUGLUTIDE [Suspect]
     Active Substance: TEDUGLUTIDE
     Dosage: 4.5 GRAM, 1X/DAY:QD
     Route: 058
     Dates: start: 20200703
  10. TEDUGLUTIDE [Suspect]
     Active Substance: TEDUGLUTIDE
     Dosage: 4.5 UNK, 1X/DAY:QD
     Route: 065
     Dates: start: 20200703
  11. TEDUGLUTIDE [Suspect]
     Active Substance: TEDUGLUTIDE
     Dosage: 4.5 UNK, 1X/DAY:QD
     Route: 065
     Dates: start: 20200703
  12. TEDUGLUTIDE [Suspect]
     Active Substance: TEDUGLUTIDE
     Dosage: 0.45 UNK, 1X/DAY:QD
     Route: 065
     Dates: start: 20200707
  13. TEDUGLUTIDE [Suspect]
     Active Substance: TEDUGLUTIDE
     Dosage: 0.45 UNK, 1X/DAY:QD
     Route: 065
     Dates: start: 20200707
  14. TEDUGLUTIDE [Suspect]
     Active Substance: TEDUGLUTIDE
     Dosage: 4.5 MILLIGRAM, QD
     Route: 058
     Dates: start: 20200703
  15. TEDUGLUTIDE [Suspect]
     Active Substance: TEDUGLUTIDE
     Indication: SHORT-BOWEL SYNDROME
     Dosage: 0.45 MILLILITER, 1X/DAY:QD
     Route: 050
  16. TEDUGLUTIDE [Suspect]
     Active Substance: TEDUGLUTIDE
     Dosage: 0.45 UNK, 1X/DAY:QD
     Route: 065
     Dates: start: 20200707
  17. TEDUGLUTIDE [Suspect]
     Active Substance: TEDUGLUTIDE
     Dosage: 4.48 MILLIGRAM, 1X/DAY:QD
     Route: 058
     Dates: start: 20200703
  18. TEDUGLUTIDE [Suspect]
     Active Substance: TEDUGLUTIDE
     Dosage: 4.5 GRAM, 1X/DAY:QD
     Route: 058
     Dates: start: 20200703
  19. TEDUGLUTIDE [Suspect]
     Active Substance: TEDUGLUTIDE
     Dosage: 4.5 GRAM, 1X/DAY:QD
     Route: 058
     Dates: start: 20200703
  20. TEDUGLUTIDE [Suspect]
     Active Substance: TEDUGLUTIDE
     Dosage: 4.48 MILLIGRAM, 1X/DAY:QD
     Route: 058
     Dates: start: 20200703
  21. TEDUGLUTIDE [Suspect]
     Active Substance: TEDUGLUTIDE
     Dosage: 4.5 UNK, 1X/DAY:QD
     Route: 065
     Dates: start: 20200703
  22. TEDUGLUTIDE [Suspect]
     Active Substance: TEDUGLUTIDE
     Dosage: 4.5 UNK, 1X/DAY:QD
     Route: 065
     Dates: start: 20200703
  23. TEDUGLUTIDE [Suspect]
     Active Substance: TEDUGLUTIDE
     Indication: SHORT-BOWEL SYNDROME
     Dosage: 0.45 MILLILITER, 1X/DAY:QD
     Route: 050
  24. TEDUGLUTIDE [Suspect]
     Active Substance: TEDUGLUTIDE
     Dosage: 0.45 UNK, 1X/DAY:QD
     Route: 065
     Dates: start: 20200707

REACTIONS (7)
  - Injection site erythema [Unknown]
  - Abdominal distension [Recovered/Resolved]
  - Product dose omission issue [Unknown]
  - Abdominal pain [Unknown]
  - Faecaloma [Recovered/Resolved]
  - Abdominal pain upper [Recovered/Resolved]
  - Constipation [Unknown]

NARRATIVE: CASE EVENT DATE: 20200705
